FAERS Safety Report 15178459 (Version 2)
Quarter: 2018Q3

REPORT INFORMATION
  Report Type: Spontaneous
  Country: US (occurrence: US)
  Receive Date: 20180722
  Receipt Date: 20180819
  Transmission Date: 20181010
  Serious: No
  Sender: FDA-Public Use
  Company Number: US-JNJFOC-20180637218

PATIENT
  Age: 47 Year
  Sex: Male
  Weight: 109.77 kg

DRUGS (7)
  1. RISPERDAL CONSTA [Suspect]
     Active Substance: RISPERIDONE
     Indication: SCHIZOPHRENIA
     Dosage: STRENGTH: 25 MG
     Route: 030
     Dates: end: 2018
  2. TRILEPTAL [Concomitant]
     Active Substance: OXCARBAZEPINE
     Route: 065
     Dates: start: 201806
  3. RISPERDAL CONSTA [Suspect]
     Active Substance: RISPERIDONE
     Indication: SCHIZOPHRENIA
     Dosage: STRENGTH: 37.5 MG
     Route: 030
     Dates: start: 20180515
  4. RISPERDAL [Suspect]
     Active Substance: RISPERIDONE
     Indication: PRODUCT USED FOR UNKNOWN INDICATION
     Route: 065
     Dates: start: 20180516
  5. RISPERDAL [Suspect]
     Active Substance: RISPERIDONE
     Indication: PRODUCT USED FOR UNKNOWN INDICATION
     Route: 065
     Dates: end: 201805
  6. TRILEPTAL [Concomitant]
     Active Substance: OXCARBAZEPINE
     Dosage: AT BEDTIME
     Route: 065
     Dates: start: 20180616, end: 201806
  7. COGENTIN [Concomitant]
     Active Substance: BENZTROPINE MESYLATE
     Route: 065

REACTIONS (3)
  - Adverse event [Unknown]
  - Drug dose omission [Unknown]
  - Physical product label issue [Unknown]

NARRATIVE: CASE EVENT DATE: 20180515
